FAERS Safety Report 8576553-9 (Version None)
Quarter: 2012Q3

REPORT INFORMATION
  Report Type: 
  Country: None (occurrence: None)
  Receive Date: 20120807
  Receipt Date: 20120803
  Transmission Date: 20120928
  Serious: Yes (Life-Threatening, Hospitalization, Other)
  Sender: FDA-Public Use
  Company Number: US-JNJFOC-20120713846

PATIENT
  Sex: Male
  Weight: 116.58 kg

DRUGS (12)
  1. FENTANYL [Concomitant]
     Indication: PAIN
  2. LIPITOR [Concomitant]
     Route: 048
  3. LYRICA [Concomitant]
     Route: 048
  4. HYDROCODONE BITARTRATE AND ACETAMINOPHEN [Concomitant]
     Dosage: AS NEEDED
  5. FUROSEMIDE [Concomitant]
     Route: 048
  6. LOSARTAN POTASSIUM [Concomitant]
     Route: 048
  7. PROTONIX [Concomitant]
  8. XARELTO [Suspect]
     Indication: CEREBROVASCULAR ACCIDENT PROPHYLAXIS
     Dosage: STARTED BETWEEN THE 19TH AND THE 26TH OF JUNE
     Route: 048
     Dates: start: 20120601
  9. SPIRONOLACTONE [Concomitant]
  10. XARELTO [Suspect]
     Indication: ATRIAL FIBRILLATION
     Dosage: STARTED BETWEEN THE 19TH AND THE 26TH OF JUNE
     Route: 048
     Dates: start: 20120601
  11. PAIN MEDICATION [Concomitant]
  12. MELOXICAM [Concomitant]
     Route: 048

REACTIONS (4)
  - PERICARDIAL EFFUSION [None]
  - RENAL FAILURE [None]
  - PULMONARY OEDEMA [None]
  - CARDIAC TAMPONADE [None]
